FAERS Safety Report 8373833-7 (Version None)
Quarter: 2012Q2

REPORT INFORMATION
  Report Type: 
  Country: None (occurrence: None)
  Receive Date: 20120521
  Receipt Date: 20120516
  Transmission Date: 20120825
  Serious: Yes (Hospitalization)
  Sender: FDA-Public Use
  Company Number: US-ACTELION-A-NJ2012-64492

PATIENT

DRUGS (16)
  1. TRACLEER [Suspect]
     Indication: PULMONARY ARTERIAL HYPERTENSION
     Dosage: UNK
     Route: 048
     Dates: start: 20120106
  2. SAVELLA [Concomitant]
  3. XANAX [Concomitant]
  4. POTASSIUM CHLORIDE [Concomitant]
  5. NEURONTIN [Concomitant]
  6. COLACE [Concomitant]
  7. DIAMOX [Concomitant]
  8. GABAPENTIN [Concomitant]
  9. LORATADINE [Concomitant]
  10. BUMEX [Concomitant]
  11. SILDENAFIL [Concomitant]
  12. ASPIRIN [Concomitant]
  13. MULTI-VITAMIN [Concomitant]
  14. OXYGEN [Concomitant]
  15. SENOKOT [Concomitant]
  16. PROTONIX [Concomitant]

REACTIONS (3)
  - LOWER LIMB FRACTURE [None]
  - LIMB OPERATION [None]
  - PNEUMONIA [None]
